FAERS Safety Report 5053198-9 (Version None)
Quarter: 2006Q3

REPORT INFORMATION
  Report Type: 
  Country: None (occurrence: None)
  Receive Date: 20060712
  Receipt Date: 20060629
  Transmission Date: 20061208
  Serious: Yes (Other)
  Sender: FDA-Public Use
  Company Number: 2006063590

PATIENT
  Sex: Female

DRUGS (9)
  1. LYRICA [Suspect]
     Indication: RADICULOPATHY
     Dosage: 300 MG (1500 MG, 2 IN 1 D)
     Dates: start: 20051201
  2. LIPITOR [Concomitant]
  3. NORVASC [Concomitant]
  4. REVLIMID (UK-14, 275) [Concomitant]
  5. EFFEXOR [Concomitant]
  6. METHADONE HCL [Concomitant]
  7. OXYCODONE (OXYCODONE) [Concomitant]
  8. NITROFURANTOIN [Concomitant]
  9. ECOTRIN (ACETYLSALIYCLIC ACID) [Concomitant]

REACTIONS (3)
  - HYPOAESTHESIA [None]
  - MYALGIA [None]
  - THROMBOCYTOPENIA [None]
